FAERS Safety Report 4660497-9 (Version None)
Quarter: 2005Q2

REPORT INFORMATION
  Report Type: 
  Country: None (occurrence: None)
  Receive Date: 20050511
  Receipt Date: 20050511
  Transmission Date: 20051028
  Serious: No
  Sender: FDA-Public Use
  Company Number: None

PATIENT
  Age: 79 Year
  Sex: Male
  Weight: 54.5 kg

DRUGS (2)
  1. MIDAZOLAM HCL [Suspect]
     Indication: SEDATION
     Dosage: 1 MG IV
     Route: 042
     Dates: start: 20050218
  2. MIDAZOLAM HCL [Suspect]
     Indication: SEDATION
     Dosage: 1 MG IV
     Route: 042
     Dates: start: 20050222

REACTIONS (4)
  - DELAYED RECOVERY FROM ANAESTHESIA [None]
  - HYPOVENTILATION [None]
  - MENTAL STATUS CHANGES [None]
  - RESPIRATORY FAILURE [None]
